FAERS Safety Report 4381691-0 (Version None)
Quarter: 2004Q2

REPORT INFORMATION
  Report Type: 
  Country: None (occurrence: None)
  Receive Date: 20040616
  Receipt Date: 20040408
  Transmission Date: 20050107
  Serious: No
  Sender: FDA-Public Use
  Company Number: P2004000001

PATIENT
  Age: 65 Year
  Sex: Male
  Weight: 78.9 kg

DRUGS (6)
  1. PLENAXIS [Suspect]
     Indication: PROSTATE CANCER METASTATIC
     Dosage: 100 MG, DAY 1, 15, 29 AND 4 WKS, INTRAMUSCULAR
     Route: 030
     Dates: start: 20040401
  2. PROSCAR / USA/ (FINASTERIDE) [Concomitant]
  3. VIAGRA / SWE/ (SILDENAFIL CITRATE) [Concomitant]
  4. ACETYLSALICYLIC ACID SRT [Concomitant]
  5. AMBIEN [Concomitant]
  6. ZITHROMAX [Concomitant]

REACTIONS (4)
  - DIZZINESS [None]
  - FEELING HOT [None]
  - INJECTION SITE BURNING [None]
  - NAUSEA [None]
